FAERS Safety Report 6423117-9 (Version None)
Quarter: 2009Q4

REPORT INFORMATION
  Report Type: 
  Country: None (occurrence: None)
  Receive Date: 20091028
  Receipt Date: 20091014
  Transmission Date: 20100525
  Serious: Yes (Other)
  Sender: FDA-Public Use
  Company Number: 2009AL006575

PATIENT
  Age: 14 Year
  Sex: Female

DRUGS (3)
  1. FEVERALL [Suspect]
  2. CARBAMAZEPINE [Suspect]
  3. PHENYTOIN [Suspect]

REACTIONS (2)
  - COMA [None]
  - SUICIDE ATTEMPT [None]
